FAERS Safety Report 7222231-8 (Version None)
Quarter: 2011Q1

REPORT INFORMATION
  Report Type: 
  Country: None (occurrence: None)
  Receive Date: 20110103
  Receipt Date: 20101217
  Transmission Date: 20110831
  Serious: Yes (Other)
  Sender: FDA-Public Use
  Company Number: 1000017921

PATIENT
  Age: 86 Year
  Sex: Male
  Weight: 76 kg

DRUGS (16)
  1. DUPHALAC (LACTULOSE) (LACTULOSE) [Concomitant]
  2. PREVISCAN (FLUINDIONE) (TABLETS) [Suspect]
     Indication: THROMBOSIS PROPHYLAXIS
     Dosage: 0.75 DOSAGE FORM (0.75 DOSAGE FORMS, 1 IN 1 D), ORAL
     Route: 048
     Dates: start: 20101110
  3. VASTAREL (TRIMETAZIDINE HYDROCHLORIDE)(TRIMETAZIDINE HYDROCHLORIDE) [Concomitant]
  4. OMEXEL (TAMSULOSIN HYDROCHLORIDE) (TAMSULOSIN HYDROCHLORIDE) [Concomitant]
  5. PREVISCAN (FLUINDIONE) (TABLETS) [Suspect]
     Indication: THROMBOSIS PROPHYLAXIS
     Dosage: 1 DOSAGE FORM (1 DOSAGE FORMS,1 IN 1 D), ORAL
     Route: 048
     Dates: start: 20101103, end: 20101106
  6. PIASCLEDINE (GLYCINE MAX SEED OIL, PERSEA AMERICANA OIL)(GLYCINE MAX S [Concomitant]
  7. LAROXYL (AMITRIPTYLINE HYDROCHLORIDE)(AMITRIPTYLINE HYDROCHLORIDE) [Concomitant]
  8. CHIBRO-PROSCAR (FINASTERIDE) (FINASTERIDE) [Concomitant]
  9. TEMESTA (LORAZEPAM) (LORAZEPAM) [Concomitant]
  10. DAFALGAN (PARACETAMOL) (PARACETAMOL) [Concomitant]
  11. PERISTALTINE (RHAMNUS PURSHIANA DRY EXTRACT) (RHAMNUS PURSHIANA DRY EX [Concomitant]
  12. ESCITALOPRAM [Suspect]
  13. LOVENOX [Suspect]
     Indication: THROMBOSIS PROPHYLAXIS
     Dosage: 12000 IU (6000 IU,2 IN 1 D),SUBCUTANEOUS, SUBCUTANEOUS
     Route: 058
     Dates: start: 20101011, end: 20101102
  14. TARKA (TRANDOLAPRIL, VERAPAMIL) (TRANDOLAPRIL, VERAPAMIL) [Concomitant]
  15. ALLOPURINOL [Concomitant]
  16. LIPANTHYL (FENOFIBRATE) (FENOFIBRATE) [Concomitant]

REACTIONS (6)
  - PULMONARY EMBOLISM [None]
  - ACTIVATED PARTIAL THROMBOPLASTIN TIME PROLONGED [None]
  - INTERNATIONAL NORMALISED RATIO INCREASED [None]
  - PHIMOSIS [None]
  - HAEMATURIA [None]
  - URINARY TRACT INFECTION [None]
